FAERS Safety Report 5946934-8 (Version None)
Quarter: 2008Q4

REPORT INFORMATION
  Report Type: 
  Country: None (occurrence: None)
  Receive Date: 20081107
  Receipt Date: 20081107
  Transmission Date: 20090506
  Serious: No
  Sender: FDA-Public Use
  Company Number: None

PATIENT
  Age: 61 Year
  Sex: Male
  Weight: 99.7913 kg

DRUGS (1)
  1. FLUOXETINE [Suspect]
     Dosage: 2 DAILY PO
     Route: 048
     Dates: start: 20080915, end: 20081107

REACTIONS (3)
  - ANXIETY [None]
  - DEPRESSION [None]
  - THERAPEUTIC RESPONSE UNEXPECTED WITH DRUG SUBSTITUTION [None]
